FAERS Safety Report 13710999 (Version 1)
Quarter: 2017Q3

REPORT INFORMATION
  Report Type: Spontaneous
  Country: US (occurrence: US)
  Receive Date: 20170703
  Receipt Date: 20170703
  Transmission Date: 20171127
  Serious: No
  Sender: FDA-Public Use
  Company Number: US-BIOGEN-2017BI00423078

PATIENT
  Sex: Female

DRUGS (2)
  1. TYSABRI [Suspect]
     Active Substance: NATALIZUMAB
     Indication: MULTIPLE SCLEROSIS
     Route: 065
     Dates: start: 20070503, end: 20121221
  2. TYSABRI [Suspect]
     Active Substance: NATALIZUMAB
     Dates: start: 20130713

REACTIONS (2)
  - Asthenia [Unknown]
  - Multiple sclerosis [Unknown]
